FAERS Safety Report 13698656 (Version 1)
Quarter: 2017Q2

REPORT INFORMATION
  Report Type: Spontaneous
  Country: US (occurrence: US)
  Receive Date: 20170628
  Receipt Date: 20170628
  Transmission Date: 20170830
  Serious: No
  Sender: FDA-Public Use
  Company Number: US-ACTELION-A-US2017-155959

PATIENT
  Age: 73 Year
  Sex: Female

DRUGS (5)
  1. AMOXICILLIN. [Concomitant]
     Active Substance: AMOXICILLIN
  2. FAMOTIDINE. [Concomitant]
     Active Substance: FAMOTIDINE
  3. OPSUMIT [Suspect]
     Active Substance: MACITENTAN
     Indication: PULMONARY ARTERIAL HYPERTENSION
     Dosage: 10 MG, UNK
     Route: 048
     Dates: start: 20170613
  4. CARVEDILOL. [Concomitant]
     Active Substance: CARVEDILOL
  5. LOSARTAN POTASSIUM. [Concomitant]
     Active Substance: LOSARTAN POTASSIUM

REACTIONS (4)
  - Headache [Not Recovered/Not Resolved]
  - Dizziness [Not Recovered/Not Resolved]
  - Myalgia [Not Recovered/Not Resolved]
  - Pyrexia [Not Recovered/Not Resolved]
